FAERS Safety Report 6410734-5 (Version None)
Quarter: 2009Q4

REPORT INFORMATION
  Report Type: 
  Country: None (occurrence: None)
  Receive Date: 20091022
  Receipt Date: 20091014
  Transmission Date: 20100525
  Serious: Yes (Hospitalization)
  Sender: FDA-Public Use
  Company Number: JP-ASTRAZENECA-2009SE09998

PATIENT
  Age: 851 Month
  Sex: Female

DRUGS (13)
  1. SEROQUEL [Suspect]
     Indication: DEMENTIA
     Route: 048
     Dates: start: 20081016, end: 20090616
  2. SEROQUEL [Suspect]
     Route: 048
     Dates: start: 20090617, end: 20090704
  3. LANDSEN [Suspect]
     Indication: DEMENTIA
     Route: 065
     Dates: start: 20081101, end: 20090601
  4. LANDSEN [Suspect]
     Route: 065
     Dates: start: 20090602, end: 20090608
  5. LANDSEN [Suspect]
     Route: 065
     Dates: start: 20090609, end: 20090611
  6. LANDSEN [Suspect]
     Route: 065
     Dates: start: 20090612, end: 20090617
  7. LITHIUM CARBONATE [Concomitant]
     Indication: DEMENTIA
     Route: 065
     Dates: end: 20090523
  8. BENZALIN [Concomitant]
     Indication: DEMENTIA
     Route: 065
  9. ZOPICOOL [Concomitant]
     Indication: DEMENTIA
     Route: 065
  10. DAIKENTYUTO [Concomitant]
     Indication: CONSTIPATION
     Route: 065
  11. MAGNESIUM OXIDE [Concomitant]
     Indication: CONSTIPATION
     Route: 065
  12. SENNARIDE [Concomitant]
     Indication: CONSTIPATION
     Route: 065
  13. FAMOSTAGINE [Concomitant]
     Indication: GASTRITIS
     Route: 065
     Dates: end: 20090530

REACTIONS (1)
  - PANCYTOPENIA [None]
